FAERS Safety Report 20453551 (Version 1)
Quarter: 2022Q1

REPORT INFORMATION
  Report Type: Spontaneous
  Country: JP (occurrence: JP)
  Receive Date: 20220210
  Receipt Date: 20220210
  Transmission Date: 20220424
  Serious: Yes (Hospitalization, Other)
  Sender: FDA-Public Use
  Company Number: JP-ALKEM LABORATORIES LIMITED-JP-ALKEM-2021-05262

PATIENT
  Age: 65 Year
  Sex: Male

DRUGS (1)
  1. LINEZOLID [Suspect]
     Active Substance: LINEZOLID
     Indication: Meningitis
     Dosage: 600 MILLIGRAM, BID
     Route: 042

REACTIONS (2)
  - Thrombocytopenia [Unknown]
  - Drug level increased [Unknown]
